FAERS Safety Report 7382237-5 (Version None)
Quarter: 2011Q1

REPORT INFORMATION
  Report Type: 
  Country: None (occurrence: None)
  Receive Date: 20110329
  Receipt Date: 20110324
  Transmission Date: 20110831
  Serious: Yes (Death)
  Sender: FDA-Public Use
  Company Number: GB-MERCK-1103GBR00133

PATIENT

DRUGS (2)
  1. FENTANYL [Suspect]
     Route: 065
  2. EMEND [Suspect]
     Route: 048

REACTIONS (2)
  - DEATH [None]
  - DRUG INTERACTION [None]
